FAERS Safety Report 9998913 (Version 2)
Quarter: 2014Q2

REPORT INFORMATION
  Report Type: Spontaneous
  Country: GB (occurrence: GB)
  Receive Date: 20140312
  Receipt Date: 20140522
  Transmission Date: 20141212
  Serious: Yes (Life-Threatening, Hospitalization, Disabling)
  Sender: FDA-Public Use
  Company Number: GB-ORION CORPORATION ORION PHARMA-ENT 2014-0040

PATIENT
  Age: 70 Year
  Sex: Male
  Weight: 59.41 kg

DRUGS (5)
  1. COMTESS [Suspect]
     Indication: PARKINSON^S DISEASE
     Route: 048
  2. MADOPAR [Suspect]
     Indication: PARKINSON^S DISEASE
     Route: 048
  3. SINEMET [Suspect]
     Indication: PARKINSON^S DISEASE
     Route: 048
  4. SEROQUEL [Concomitant]
     Route: 065
  5. ANTIEMETICS [Concomitant]
     Route: 065

REACTIONS (9)
  - Drug dose omission [Unknown]
  - Loss of consciousness [Recovered/Resolved with Sequelae]
  - Dyskinesia [Recovered/Resolved with Sequelae]
  - Akinesia [Recovered/Resolved with Sequelae]
  - Quality of life decreased [Unknown]
  - Aphagia [Recovered/Resolved with Sequelae]
  - Aphasia [Recovered/Resolved with Sequelae]
  - Dehydration [Recovered/Resolved with Sequelae]
  - Withdrawal syndrome [Recovered/Resolved with Sequelae]
